FAERS Safety Report 16745093 (Version 1)
Quarter: 2019Q3

REPORT INFORMATION
  Report Type: Spontaneous
  Country: US (occurrence: US)
  Receive Date: 20190827
  Receipt Date: 20190827
  Transmission Date: 20191005
  Serious: Yes (Hospitalization, Other)
  Sender: FDA-Public Use
  Company Number: US-GLAXOSMITHKLINE-US2019154058

PATIENT
  Sex: Female

DRUGS (1)
  1. BENLYSTA [Suspect]
     Active Substance: BELIMUMAB
     Indication: MIXED CONNECTIVE TISSUE DISEASE
     Dosage: 200 MG, WE
     Route: 058
     Dates: start: 201802, end: 201810

REACTIONS (9)
  - Skin reaction [Recovered/Resolved]
  - Impaired gastric emptying [Unknown]
  - Nausea [Recovered/Resolved]
  - Infection [Unknown]
  - Autoimmune disorder [Unknown]
  - Product use in unapproved indication [Unknown]
  - Vomiting [Unknown]
  - Dyspnoea [Recovered/Resolved]
  - Pneumonia [Recovered/Resolved]
